FAERS Safety Report 10068829 (Version 1)
Quarter: 2014Q2

REPORT INFORMATION
  Report Type: Spontaneous
  Country: US (occurrence: US)
  Receive Date: 20140409
  Receipt Date: 20140409
  Transmission Date: 20141212
  Serious: Yes (Hospitalization)
  Sender: FDA-Public Use
  Company Number: US-BAYER-2014-049462

PATIENT
  Sex: Female

DRUGS (1)
  1. ALEVE CAPLET [Suspect]
     Indication: PAIN
     Dosage: 2 DF, UNK
     Route: 048

REACTIONS (5)
  - Renal failure [Recovered/Resolved]
  - Vomiting [None]
  - Asthenia [None]
  - Malaise [None]
  - Drug hypersensitivity [None]
